FAERS Safety Report 23932335 (Version 1)
Quarter: 2024Q2

REPORT INFORMATION
  Report Type: Spontaneous
  Country: IN (occurrence: IN)
  Receive Date: 20240603
  Receipt Date: 20240603
  Transmission Date: 20240716
  Serious: Yes (Death)
  Sender: FDA-Public Use
  Company Number: IN-PFIZER INC-PV202300164058

PATIENT
  Age: 64 Year
  Sex: Female

DRUGS (1)
  1. PALBOCICLIB [Suspect]
     Active Substance: PALBOCICLIB
     Indication: Breast cancer
     Dosage: DAILY ONCE FOR 21 DAYS IN A MONTH
     Route: 048
     Dates: start: 20231024

REACTIONS (2)
  - Death [Fatal]
  - Neoplasm progression [Unknown]
